FAERS Safety Report 4750584-9 (Version None)
Quarter: 2005Q3

REPORT INFORMATION
  Report Type: 
  Country: None (occurrence: None)
  Receive Date: 20050823
  Receipt Date: 20050811
  Transmission Date: 20060218
  Serious: Yes (Hospitalization)
  Sender: FDA-Public Use
  Company Number: 2005UW11963

PATIENT
  Age: 81 Year
  Sex: Female
  Weight: 52.6 kg

DRUGS (1)
  1. CRESTOR [Suspect]
     Indication: BLOOD CHOLESTEROL INCREASED
     Route: 048
     Dates: start: 20030101, end: 20040101

REACTIONS (4)
  - DIVERTICULITIS [None]
  - MUSCLE ATROPHY [None]
  - MUSCULAR WEAKNESS [None]
  - WEIGHT DECREASED [None]
